FAERS Safety Report 7150315-1 (Version None)
Quarter: 2010Q4

REPORT INFORMATION
  Report Type: 
  Country: None (occurrence: None)
  Receive Date: 20101207
  Receipt Date: 20101207
  Transmission Date: 20110411
  Serious: Yes (Other)
  Sender: FDA-Public Use
  Company Number: None

PATIENT
  Age: 55 Year
  Sex: Male

DRUGS (10)
  1. SUTENT [Suspect]
     Indication: MALIGNANT MELANOMA
     Dosage: 50 MG PO DAILY DAYS 1-26
     Dates: start: 20101018
  2. SUTENT [Suspect]
     Indication: METASTASES TO CENTRAL NERVOUS SYSTEM
     Dosage: 50 MG PO DAILY DAYS 1-26
     Dates: start: 20101018
  3. SUTENT [Suspect]
     Indication: MALIGNANT MELANOMA
     Dosage: 50 MG PO DAILY DAYS 1-26
     Dates: start: 20101114
  4. SUTENT [Suspect]
     Indication: METASTASES TO CENTRAL NERVOUS SYSTEM
     Dosage: 50 MG PO DAILY DAYS 1-26
     Dates: start: 20101114
  5. HUMALOG KWIKPEN [Concomitant]
  6. HYDROCORTISONE CREAM [Concomitant]
  7. MULTI-VITAMIN [Concomitant]
  8. LISINOPRIL [Concomitant]
  9. SIMVASTATIN [Concomitant]
  10. TERAZOSIN HCL [Concomitant]

REACTIONS (4)
  - DYSARTHRIA [None]
  - GAIT DISTURBANCE [None]
  - HAEMORRHAGE INTRACRANIAL [None]
  - VISION BLURRED [None]
